FAERS Safety Report 9983594 (Version 8)
Quarter: 2018Q1

REPORT INFORMATION
  Report Type: Spontaneous
  Country: US (occurrence: US)
  Receive Date: 20140307
  Receipt Date: 20180213
  Transmission Date: 20180509
  Serious: Yes (Hospitalization, Disabling, Other)
  Sender: FDA-Public Use
  Company Number: US-009507513-1403USA000595

PATIENT
  Sex: Female

DRUGS (6)
  1. VITAMIN E [Concomitant]
     Active Substance: .ALPHA.-TOCOPHEROL
     Dosage: 500 MG, QD
     Route: 065
     Dates: start: 2001
  2. CALCIUM (UNSPECIFIED) [Concomitant]
     Active Substance: CALCIUM
     Dosage: 1200 MG, QD
     Route: 065
     Dates: start: 2001, end: 201504
  3. OMEPRAZOLE. [Concomitant]
     Active Substance: OMEPRAZOLE
     Dosage: UNK
     Route: 065
     Dates: start: 2001
  4. FOSAMAX [Suspect]
     Active Substance: ALENDRONATE SODIUM
     Indication: OSTEOPOROSIS
     Dosage: 70 MG, QW
     Route: 048
     Dates: start: 200104, end: 200712
  5. VITAMIN D [Concomitant]
     Active Substance: CHOLECALCIFEROL
     Dosage: 2000 MG, QD
     Route: 065
     Dates: start: 2001
  6. CORTICOSTEROIDS (UNSPECIFIED) [Concomitant]
     Active Substance: UNSPECIFIED INGREDIENT
     Dosage: UNK
     Route: 065
     Dates: start: 2001, end: 201508

REACTIONS (27)
  - Endodontic procedure [Unknown]
  - Fall [Unknown]
  - Osteonecrosis [Unknown]
  - Arthralgia [Unknown]
  - Osteochondrosis [Unknown]
  - Hypertension [Unknown]
  - Hysterectomy [Unknown]
  - Vasculitis cerebral [Unknown]
  - Headache [Unknown]
  - Blood cholesterol increased [Unknown]
  - Mitral valve prolapse [Unknown]
  - Fatigue [Unknown]
  - Gastrooesophageal reflux disease [Unknown]
  - Fracture nonunion [Unknown]
  - Osteoporosis [Unknown]
  - Avulsion fracture [Unknown]
  - Femur fracture [Recovered/Resolved]
  - Necrosis [Unknown]
  - Osteoarthritis [Not Recovered/Not Resolved]
  - Constipation [Unknown]
  - Type 2 diabetes mellitus [Unknown]
  - Joint surgery [Unknown]
  - Joint swelling [Unknown]
  - Rheumatoid arthritis [Unknown]
  - Bladder operation [Unknown]
  - Device dislocation [Unknown]
  - Cartilage injury [Unknown]

NARRATIVE: CASE EVENT DATE: 2001
